FAERS Safety Report 8920658 (Version 1)
Quarter: 2012Q4

REPORT INFORMATION
  Report Type: 
  Country: FR (occurrence: FR)
  Receive Date: 20121122
  Receipt Date: 20121122
  Transmission Date: 20130627
  Serious: Yes (Other)
  Sender: FDA-Public Use
  Company Number: FR-009507513-1211FRA005278

PATIENT
  Age: 6 Month
  Sex: Female
  Weight: 8 kg

DRUGS (1)
  1. CELESTENE [Suspect]
     Indication: NASOPHARYNGITIS
     Dosage: 160 Gtt, bid
     Route: 048
     Dates: start: 20121006, end: 20121007

REACTIONS (4)
  - Agitation [Recovered/Resolved]
  - Agitation [Recovered/Resolved]
  - Medication error [Recovered/Resolved]
  - Incorrect dose administered [Recovered/Resolved]
